FAERS Safety Report 16678625 (Version 1)
Quarter: 2019Q3

REPORT INFORMATION
  Report Type: Report from Study
  Country: DE (occurrence: DE)
  Receive Date: 20190807
  Receipt Date: 20190807
  Transmission Date: 20191004
  Serious: Yes (Other)
  Sender: FDA-Public Use
  Company Number: DE-JNJFOC-20190700009

PATIENT

DRUGS (3)
  1. CAELYX [Suspect]
     Active Substance: DOXORUBICIN HYDROCHLORIDE
     Indication: SMALL CELL LUNG CANCER
     Route: 065
  2. VINCRISTINE [Suspect]
     Active Substance: VINCRISTINE
     Indication: SMALL CELL LUNG CANCER
     Route: 065
  3. CYCLOPHOSPHAMIDE. [Suspect]
     Active Substance: CYCLOPHOSPHAMIDE
     Indication: SMALL CELL LUNG CANCER
     Route: 065

REACTIONS (3)
  - Lung neoplasm malignant [Unknown]
  - Off label use [Unknown]
  - Product use in unapproved indication [Unknown]
